FAERS Safety Report 21360617 (Version 4)
Quarter: 2023Q2

REPORT INFORMATION
  Report Type: Other
  Country: ES (occurrence: None)
  Receive Date: 20220921
  Receipt Date: 20230630
  Transmission Date: 20230722
  Serious: No
  Sender: FDA-Public Use
  Company Number: ES-ROCHE-3145027

PATIENT
  Age: 51 Year
  Sex: Male
  Weight: 76.4 kg

DRUGS (10)
  1. OCRELIZUMAB [Suspect]
     Active Substance: OCRELIZUMAB
     Indication: Primary progressive multiple sclerosis
     Dosage: SUBSEQUENT DOSES OF OCRELIZUMAB: 29/JUL/2020
     Route: 042
     Dates: start: 20200715, end: 20200715
  2. OCRELIZUMAB [Suspect]
     Active Substance: OCRELIZUMAB
     Dosage: SUBSEQUENT DOSES OF OCRELIZUMAB: 15/JUL/2021, 18/JAN/2022, 12/SEP/2022, 21/MAR/2023
     Route: 042
     Dates: start: 20210125, end: 20210125
  3. METHYLPREDNISOLONE [Concomitant]
     Active Substance: METHYLPREDNISOLONE
     Route: 042
     Dates: start: 20220912, end: 20220912
  4. METHYLPREDNISOLONE [Concomitant]
     Active Substance: METHYLPREDNISOLONE
     Route: 042
     Dates: start: 20230321, end: 20230321
  5. POLARAMINE [Concomitant]
     Active Substance: DEXCHLORPHENIRAMINE MALEATE
     Dates: start: 20220912, end: 20220912
  6. POLARAMINE [Concomitant]
     Active Substance: DEXCHLORPHENIRAMINE MALEATE
     Route: 042
     Dates: start: 20230321, end: 20230321
  7. PERFALGAN [Concomitant]
     Active Substance: ACETAMINOPHEN
     Dates: start: 20220912, end: 20220912
  8. PERFALGAN [Concomitant]
     Active Substance: ACETAMINOPHEN
     Route: 042
     Dates: start: 20230321, end: 20230321
  9. OMEPRAZOLE [Concomitant]
     Active Substance: OMEPRAZOLE
     Dates: start: 20220912, end: 20220912
  10. OMEPRAZOLE [Concomitant]
     Active Substance: OMEPRAZOLE
     Route: 042
     Dates: start: 20230321, end: 20230321

REACTIONS (3)
  - Blood immunoglobulin M decreased [Not Recovered/Not Resolved]
  - COVID-19 [Recovered/Resolved]
  - Infusion related reaction [Recovered/Resolved]

NARRATIVE: CASE EVENT DATE: 20220407
